FAERS Safety Report 17835598 (Version 2)
Quarter: 2020Q2

REPORT INFORMATION
  Report Type: Spontaneous
  Country: US (occurrence: US)
  Receive Date: 20200528
  Receipt Date: 20200604
  Transmission Date: 20200714
  Serious: No
  Sender: FDA-Public Use
  Company Number: US-SA-2020SA137056

PATIENT

DRUGS (2)
  1. NASACORT [Suspect]
     Active Substance: TRIAMCINOLONE ACETONIDE
     Indication: MULTIPLE ALLERGIES
     Dosage: UNK UNK, QD (APPROXIMATELY 4-6 PUFFS/DAY)
     Dates: start: 1990
  2. NASACORT [Suspect]
     Active Substance: TRIAMCINOLONE ACETONIDE
     Dosage: UNK UNK, QD (USE JUST 1-2 PUFFS A DAY)
     Dates: start: 1990

REACTIONS (4)
  - Intentional product misuse [Unknown]
  - Product dose omission [Unknown]
  - Product use issue [Unknown]
  - Therapeutic product effect decreased [Unknown]
